FAERS Safety Report 13745762 (Version 2)
Quarter: 2017Q4

REPORT INFORMATION
  Report Type: Spontaneous
  Country: US (occurrence: US)
  Receive Date: 20170712
  Receipt Date: 20171030
  Transmission Date: 20180320
  Serious: No
  Sender: FDA-Public Use
  Company Number: US-BAYER-2017-133251

PATIENT

DRUGS (1)
  1. ALEVE [Suspect]
     Active Substance: NAPROXEN SODIUM
     Indication: INFLAMMATION
     Dosage: UNK

REACTIONS (3)
  - Drug ineffective [None]
  - Inappropriate schedule of drug administration [None]
  - Drug ineffective [Unknown]
